FAERS Safety Report 8042500-1 (Version None)
Quarter: 2012Q1

REPORT INFORMATION
  Report Type: 
  Country: None (occurrence: None)
  Receive Date: 20120112
  Receipt Date: 20120111
  Transmission Date: 20120608
  Serious: No
  Sender: FDA-Public Use
  Company Number: US-PFIZER INC-2012008994

PATIENT
  Sex: Male
  Weight: 68.481 kg

DRUGS (2)
  1. AMBIEN [Concomitant]
     Indication: SLEEP DISORDER
     Dosage: 10 MG
     Route: 048
  2. CHANTIX [Suspect]
     Indication: SMOKING CESSATION THERAPY
     Dosage: 0.5 MG
     Route: 048
     Dates: start: 20120103

REACTIONS (2)
  - CHEST DISCOMFORT [None]
  - EUPHORIC MOOD [None]
